FAERS Safety Report 8112992-8 (Version None)
Quarter: 2012Q1

REPORT INFORMATION
  Report Type: 
  Country: None (occurrence: None)
  Receive Date: 20120203
  Receipt Date: 20120123
  Transmission Date: 20120608
  Serious: Yes (Hospitalization)
  Sender: FDA-Public Use
  Company Number: DE-ELI_LILLY_AND_COMPANY-DE201201006328

PATIENT
  Age: 85 Year
  Sex: Female

DRUGS (3)
  1. FORTEO [Suspect]
     Indication: OSTEOPOROSIS
     Dosage: UNK, QD
     Route: 058
     Dates: start: 20110603
  2. MARCUMAR [Concomitant]
  3. TRAMADOL HCL [Concomitant]
     Dosage: 150 MG, BID

REACTIONS (2)
  - CARDIAC OPERATION [None]
  - STENT PLACEMENT [None]
